FAERS Safety Report 9472520 (Version 1)
Quarter: 2013Q3

REPORT INFORMATION
  Report Type: Spontaneous
  Country: US (occurrence: US)
  Receive Date: 20130823
  Receipt Date: 20130823
  Transmission Date: 20140515
  Serious: Yes (Other)
  Sender: FDA-Public Use
  Company Number: US-PFIZER INC-2013240732

PATIENT
  Sex: Female

DRUGS (3)
  1. SUTENT [Suspect]
     Indication: METASTATIC RENAL CELL CARCINOMA
     Dosage: 50 MG, CYCLIC (28 DAYS ON AND 14 DAYS OFF FOR FIRST CYCLE)
  2. SUTENT [Suspect]
     Dosage: 37.5 MG, UNK
  3. SUTENT [Suspect]
     Dosage: 37.5 MG ALTERNATING WITH 50 MG EVERY OTHER DAY CONTINOUSLY

REACTIONS (7)
  - Haemothorax [Unknown]
  - Pneumothorax [Unknown]
  - Pleural effusion [Not Recovered/Not Resolved]
  - White blood cell count decreased [Unknown]
  - Insomnia [Unknown]
  - Pain in extremity [Unknown]
  - Blood pressure increased [Unknown]
